FAERS Safety Report 13906360 (Version 1)
Quarter: 2017Q3

REPORT INFORMATION
  Report Type: Spontaneous
  Country: None (occurrence: US)
  Receive Date: 20170825
  Receipt Date: 20170825
  Transmission Date: 20171127
  Serious: No
  Sender: FDA-Public Use
  Company Number: US-MEDAC PHARMA, INC.-2025095

PATIENT
  Age: 28 Year
  Sex: Male
  Weight: 55 kg

DRUGS (2)
  1. ALBUTEROL. [Concomitant]
     Active Substance: ALBUTEROL
  2. RASUVO [Suspect]
     Active Substance: METHOTREXATE SODIUM
     Indication: SPONDYLOARTHROPATHY

REACTIONS (4)
  - Product use in unapproved indication [None]
  - Drug effect decreased [Unknown]
  - Contusion [Unknown]
  - Product storage error [Unknown]
